FAERS Safety Report 5604059-5 (Version None)
Quarter: 2008Q1

REPORT INFORMATION
  Report Type: 
  Country: None (occurrence: None)
  Receive Date: 20080128
  Receipt Date: 20080118
  Transmission Date: 20080703
  Serious: Yes (Other)
  Sender: FDA-Public Use
  Company Number: PHBS2008IT01102

PATIENT
  Age: 8 Year
  Sex: Male

DRUGS (1)
  1. CYCLOSPORINE [Suspect]
     Indication: ALLOGENIC BONE MARROW TRANSPLANTATION THERAPY
     Dosage: 80 MG/D
     Route: 065

REACTIONS (3)
  - BUCCAL CAVITY PAPILLOMA [None]
  - CAT SCRATCH DISEASE [None]
  - CHRONIC GRAFT VERSUS HOST DISEASE [None]
